FAERS Safety Report 5834776-3 (Version None)
Quarter: 2008Q3

REPORT INFORMATION
  Report Type: 
  Country: None (occurrence: None)
  Receive Date: 20080804
  Receipt Date: 20080724
  Transmission Date: 20090109
  Serious: Yes (Hospitalization, Other)
  Sender: FDA-Public Use
  Company Number: 163-21880-08071492

PATIENT
  Age: 79 Year
  Sex: Female

DRUGS (1)
  1. REVLIMID [Suspect]
     Indication: MULTIPLE MYELOMA
     Dosage: 25 MG, 1 IN 1 D, ORAL
     Route: 048
     Dates: start: 20080626

REACTIONS (5)
  - ARRHYTHMIA [None]
  - CONSTIPATION [None]
  - HEART RATE ABNORMAL [None]
  - MUSCLE SPASMS [None]
  - RENAL IMPAIRMENT [None]
